FAERS Safety Report 25947261 (Version 3)
Quarter: 2025Q4

REPORT INFORMATION
  Report Type: Report from Study
  Country: GB (occurrence: GB)
  Receive Date: 20251022
  Receipt Date: 20251204
  Transmission Date: 20260118
  Serious: Yes (Other)
  Sender: ABBVIE
  Company Number: GB-ABBVIE-6509563

PATIENT
  Age: 74 Year
  Sex: Female

DRUGS (1)
  1. HUMIRA [Suspect]
     Active Substance: ADALIMUMAB
     Indication: Rheumatoid arthritis
     Dosage: DOSE: 40MG/0.4ML?FOA:  SOLUTION FOR INJECTION IN PRE-FILLED PEN 2 PRE-FILLED DISPOSABLE INJECTION
     Route: 058
     Dates: start: 20220208, end: 20251010

REACTIONS (6)
  - Road traffic accident [Unknown]
  - Abdominal hernia [Unknown]
  - Spinal column injury [Not Recovered/Not Resolved]
  - Colon injury [Not Recovered/Not Resolved]
  - Rectal injury [Not Recovered/Not Resolved]
  - Head injury [Not Recovered/Not Resolved]

NARRATIVE: CASE EVENT DATE: 20240101
